FAERS Safety Report 6238954-3 (Version None)
Quarter: 2009Q2

REPORT INFORMATION
  Report Type: 
  Country: None (occurrence: None)
  Receive Date: 20090617
  Receipt Date: 20090617
  Transmission Date: 20091009
  Serious: No
  Sender: FDA-Public Use
  Company Number: None

PATIENT
  Age: 47 Year
  Sex: Female
  Weight: 113.3993 kg

DRUGS (1)
  1. ZICAM SEVERE CONGESTION RELIEF MATRIXX [Suspect]
     Indication: NASAL CONGESTION
     Dosage: 1 APPLICATION IN EACH NOSTRIL EVERY 12 HOURS NASAL
     Route: 045
     Dates: start: 20090408, end: 20090411

REACTIONS (4)
  - AGEUSIA [None]
  - ANOSMIA [None]
  - NASAL DISCOMFORT [None]
  - PAROSMIA [None]
